FAERS Safety Report 14129316 (Version 1)
Quarter: 2017Q4

REPORT INFORMATION
  Report Type: Spontaneous
  Country: FR (occurrence: FR)
  Receive Date: 20171026
  Receipt Date: 20171026
  Transmission Date: 20180321
  Serious: Yes (Other)
  Sender: FDA-Public Use
  Company Number: FR-INDIVIOR LIMITED-INDV-105525-2017

PATIENT
  Age: 38 Year
  Sex: Male

DRUGS (10)
  1. COCAINE [Suspect]
     Active Substance: COCAINE
     Indication: PRODUCT USED FOR UNKNOWN INDICATION
     Dosage: UNK
     Route: 065
  2. METHYLENEDIOXYMETHAMPHETAMINE [Suspect]
     Active Substance: MIDOMAFETAMINE
     Indication: PRODUCT USED FOR UNKNOWN INDICATION
     Dosage: 40MG PER DAY
     Route: 065
  3. CANNABIS [Suspect]
     Active Substance: CANNABIS SATIVA SUBSP. INDICA TOP
     Indication: PRODUCT USED FOR UNKNOWN INDICATION
     Dosage: 2-3 JOINTS DAILY
     Route: 055
  4. MIRTAZAPINE. [Suspect]
     Active Substance: MIRTAZAPINE
     Indication: TOOTHACHE
     Dosage: UNK
     Route: 065
     Dates: start: 2002
  5. SUBUTEX [Suspect]
     Active Substance: BUPRENORPHINE HYDROCHLORIDE
     Indication: TOOTHACHE
     Dosage: UNK
     Route: 045
     Dates: start: 2002
  6. XANAX [Suspect]
     Active Substance: ALPRAZOLAM
     Indication: TOOTHACHE
     Dosage: 6DF, ONCE DAILY
     Route: 048
     Dates: start: 2002
  7. PRONTALGINE [Suspect]
     Active Substance: ACETAMINOPHEN\AMOBARBITAL\CAFFEINE\CODEINE PHOSPHATE
     Indication: TOOTHACHE
     Dosage: 80MG DAILY
     Route: 048
  8. NICOTINE. [Suspect]
     Active Substance: NICOTINE
     Indication: PRODUCT USED FOR UNKNOWN INDICATION
     Dosage: 10 ROLLS PER DAY
     Route: 055
  9. CODOLIPRANE [Suspect]
     Active Substance: ACETAMINOPHEN\CODEINE PHOSPHATE
     Indication: TOOTHACHE
     Dosage: 40MG DAILY
     Route: 048
  10. ALCOHOL. [Suspect]
     Active Substance: ALCOHOL
     Indication: PRODUCT USED FOR UNKNOWN INDICATION
     Dosage: UNK
     Route: 065

REACTIONS (16)
  - Lymphocytosis [Unknown]
  - Drug dependence [Recovering/Resolving]
  - Intentional product use issue [Unknown]
  - Therapy non-responder [None]
  - Alcohol abuse [Recovered/Resolved]
  - Drug dependence [Not Recovered/Not Resolved]
  - Drug dependence [Recovering/Resolving]
  - Intentional product misuse [Recovering/Resolving]
  - Emphysema [Unknown]
  - Seizure [Recovered/Resolved]
  - Drug abuse [Recovered/Resolved]
  - Overdose [Unknown]
  - Drug abuse [Recovering/Resolving]
  - Drug effect incomplete [Unknown]
  - Drug abuse [Not Recovered/Not Resolved]
  - Miosis [None]

NARRATIVE: CASE EVENT DATE: 2002
